FAERS Safety Report 12739339 (Version 2)
Quarter: 2017Q1

REPORT INFORMATION
  Report Type: Spontaneous
  Country: US (occurrence: US)
  Receive Date: 20160913
  Receipt Date: 20170215
  Transmission Date: 20170428
  Serious: Yes (Death, Other)
  Sender: FDA-Public Use
  Company Number: US-ASTELLAS-2016US035642

PATIENT
  Age: 86 Year
  Sex: Male

DRUGS (2)
  1. XTANDI [Suspect]
     Active Substance: ENZALUTAMIDE
     Indication: PROSTATE CANCER METASTATIC
     Route: 048
     Dates: start: 20160505
  2. XTANDI [Suspect]
     Active Substance: ENZALUTAMIDE
     Route: 048
     Dates: end: 20170208

REACTIONS (8)
  - Fatigue [Unknown]
  - Peripheral swelling [Unknown]
  - Skin disorder [Unknown]
  - Heart rate irregular [Unknown]
  - Death [Fatal]
  - Pleural effusion [Unknown]
  - Joint swelling [Unknown]
  - Asthenia [Unknown]

NARRATIVE: CASE EVENT DATE: 201606
